FAERS Safety Report 9403769 (Version 1)
Quarter: 2013Q3

REPORT INFORMATION
  Report Type: Spontaneous
  Country: US (occurrence: None)
  Receive Date: 20130716
  Receipt Date: 20130716
  Transmission Date: 20140515
  Serious: Yes (Death)
  Sender: FDA-Public Use
  Company Number: None

PATIENT
  Sex: Male

DRUGS (1)
  1. INLYTA [Suspect]
     Indication: RENAL CANCER
     Route: 048
     Dates: start: 20121120, end: 20130713

REACTIONS (1)
  - Death [None]
